FAERS Safety Report 6894177-6 (Version None)
Quarter: 2010Q3

REPORT INFORMATION
  Report Type: 
  Country: None (occurrence: None)
  Receive Date: 20100728
  Receipt Date: 20100715
  Transmission Date: 20110219
  Serious: Yes (Hospitalization, Other)
  Sender: FDA-Public Use
  Company Number: 2010AP001464

PATIENT
  Age: 84 Year
  Sex: Female

DRUGS (13)
  1. RANITIDINE HYDROCHLORIDE [Suspect]
     Indication: DYSPEPSIA
     Dosage: 300 MG; BID; PO
     Route: 048
     Dates: start: 20100611, end: 20100620
  2. RANITIDINE HYDROCHLORIDE [Suspect]
     Indication: GASTRIC ULCER
     Dosage: 300 MG; BID; PO
     Route: 048
     Dates: start: 20100611, end: 20100620
  3. CALCIUM CARBONATE [Concomitant]
  4. COLECALCIFEROL (COLECALCIFEROL) [Concomitant]
  5. AMITRIPTYLINE HYDROCHLORIDE [Concomitant]
  6. ASPIRIN [Concomitant]
  7. ACETAMINOPHEN [Concomitant]
  8. CODEINE PHOSPHATE (CODEINE PHOSPHATE) [Concomitant]
  9. DIPYRIDAMOLE [Concomitant]
  10. FUROSEMIDE [Concomitant]
  11. PREDNISOLONE [Concomitant]
  12. QUININE (QUININE) [Concomitant]
  13. RAMIPRIL [Concomitant]

REACTIONS (5)
  - JAUNDICE [None]
  - MALAISE [None]
  - OVERDOSE [None]
  - VOMITING [None]
  - WRONG TECHNIQUE IN DRUG USAGE PROCESS [None]
